FAERS Safety Report 10456092 (Version 1)
Quarter: 2014Q3

REPORT INFORMATION
  Report Type: Spontaneous
  Country: US (occurrence: None)
  Receive Date: 20140915
  Receipt Date: 20140915
  Transmission Date: 20150326
  Serious: Yes (Hospitalization)
  Sender: FDA-Public Use
  Company Number: None

PATIENT
  Age: 54 Year
  Sex: Female
  Weight: 52.3 kg

DRUGS (18)
  1. MORPHINE [Concomitant]
     Active Substance: MORPHINE
  2. FLUOXETINE [Concomitant]
     Active Substance: FLUOXETINE\FLUOXETINE HYDROCHLORIDE
  3. P0LYETHYLENE [Concomitant]
  4. LEVAQUIN [Concomitant]
     Active Substance: LEVOFLOXACIN
  5. NORCO [Concomitant]
     Active Substance: ACETAMINOPHEN\HYDROCODONE BITARTRATE
  6. FLUNISOLIDE. [Concomitant]
     Active Substance: FLUNISOLIDE
  7. CETUXIMAB [Suspect]
     Active Substance: CETUXIMAB
     Indication: SQUAMOUS CELL CARCINOMA OF HEAD AND NECK
     Dates: start: 20140903, end: 20140903
  8. PAZOPANIB [Suspect]
     Active Substance: PAZOPANIB
     Indication: SQUAMOUS CELL CARCINOMA OF HEAD AND NECK
     Dates: start: 20140903, end: 20140910
  9. TRIAMINOLONE [Concomitant]
  10. ONDANSETRON [Concomitant]
     Active Substance: ONDANSETRON
  11. OFLOXACIN. [Concomitant]
     Active Substance: OFLOXACIN
  12. LEVALBUTEROL [Concomitant]
     Active Substance: LEVALBUTEROL
  13. BACITRACIN. [Concomitant]
     Active Substance: BACITRACIN
  14. BENZONATATE. [Concomitant]
     Active Substance: BENZONATATE
  15. GABAPENTIN. [Concomitant]
     Active Substance: GABAPENTIN
  16. PROCHLORPERAZINE. [Concomitant]
     Active Substance: PROCHLORPERAZINE
  17. DILAUDID [Concomitant]
     Active Substance: HYDROMORPHONE HYDROCHLORIDE
  18. FENTANYL. [Concomitant]
     Active Substance: FENTANYL

REACTIONS (9)
  - Chest discomfort [None]
  - Increased bronchial secretion [None]
  - Pain [None]
  - Urinary tract infection [None]
  - Hypokalaemia [None]
  - Chills [None]
  - Pyrexia [None]
  - Depression [None]
  - Flank pain [None]

NARRATIVE: CASE EVENT DATE: 20140907
